FAERS Safety Report 10560250 (Version 1)
Quarter: 2014Q4

REPORT INFORMATION
  Report Type: Spontaneous
  Country: US (occurrence: US)
  Receive Date: 20141103
  Receipt Date: 20141103
  Transmission Date: 20150529
  Serious: No
  Sender: FDA-Public Use
  Company Number: US-BRISTOL-MYERS SQUIBB COMPANY-20672580

PATIENT
  Age: 84 Year
  Sex: Female

DRUGS (5)
  1. GLIPIZIDE. [Concomitant]
     Active Substance: GLIPIZIDE
  2. SYNTHROID [Concomitant]
     Active Substance: LEVOTHYROXINE SODIUM
  3. GLUCOPHAGE XR [Suspect]
     Active Substance: METFORMIN HYDROCHLORIDE
     Dosage: 1 DF : 2 TABLETS?AT EVERY NIGHT?INCREASED TO 3 TABLETS
  4. LISINOPRIL. [Concomitant]
     Active Substance: LISINOPRIL
  5. LIPITOR [Concomitant]
     Active Substance: ATORVASTATIN CALCIUM

REACTIONS (4)
  - Peripheral coldness [Unknown]
  - Chest discomfort [Unknown]
  - Blood glucose increased [Unknown]
  - Feeling abnormal [Unknown]
